FAERS Safety Report 5041965-7 (Version None)
Quarter: 2006Q2

REPORT INFORMATION
  Report Type: 
  Country: None (occurrence: None)
  Receive Date: 20060630
  Receipt Date: 20060623
  Transmission Date: 20061013
  Serious: Yes (Hospitalization)
  Sender: FDA-Public Use
  Company Number: 2006-06-0918

PATIENT
  Age: 55 Year
  Sex: Female
  Weight: 63 kg

DRUGS (8)
  1. PEG-INTRON [Suspect]
     Indication: HEPATITIS C
     Dosage: 100 MCG QW SUBCUTANEOUS
     Route: 058
     Dates: start: 20050208, end: 20050927
  2. REBETOL [Suspect]
     Indication: HEPATITIS C
     Dosage: 800 MG ORAL
     Route: 048
     Dates: start: 20050208, end: 20051003
  3. VOLTAREN [Concomitant]
  4. ZOLPIDEM TARTRATE [Concomitant]
  5. MAGNESIUM OXIDE GRANULES [Concomitant]
  6. ALLELOCK (OLOPATADINE HCL) [Concomitant]
  7. VOLTAREN [Concomitant]
  8. LOXONIN [Concomitant]

REACTIONS (11)
  - AFFECT LABILITY [None]
  - AFFECTIVE DISORDER [None]
  - BIPOLAR I DISORDER [None]
  - FEELING GUILTY [None]
  - INSOMNIA [None]
  - LOGORRHOEA [None]
  - NEGATIVISM [None]
  - ORAL INTAKE REDUCED [None]
  - PSYCHOMOTOR HYPERACTIVITY [None]
  - STUPOR [None]
  - SUICIDE ATTEMPT [None]
